FAERS Safety Report 6688225-6 (Version None)
Quarter: 2010Q2

REPORT INFORMATION
  Report Type: 
  Country: None (occurrence: None)
  Receive Date: 20100420
  Receipt Date: 20100414
  Transmission Date: 20101027
  Serious: Yes (Life-Threatening)
  Sender: FDA-Public Use
  Company Number: JP-BAYER-200915138BYL

PATIENT
  Age: 76 Year
  Sex: Female
  Weight: 52 kg

DRUGS (12)
  1. NEXAVAR [Suspect]
     Indication: HEPATIC NEOPLASM MALIGNANT
     Dosage: TOTAL DAILY DOSE: 800 MG  UNIT DOSE: 200 MG
     Route: 048
     Dates: start: 20091106, end: 20091118
  2. APONOL [Concomitant]
     Dosage: SINCE BEFORE NEXAVAR ADMINISTRATION
     Route: 048
  3. AMINOLEBAN [Concomitant]
     Dosage: SINCE BEFORE NEXAVAR ADMINISTRATION
     Route: 048
  4. URSO 250 [Concomitant]
     Dosage: SINCE BEFORE NEXAVAR ADMINISTRATION
     Route: 048
  5. GASMOTIN [Concomitant]
     Route: 048
     Dates: start: 20091110
  6. TAKEPRON [Concomitant]
     Route: 048
     Dates: start: 20091113
  7. ASPIRIN [Concomitant]
     Dosage: UNIT DOSE: 100 MG
     Route: 048
  8. FAMOTIDINE D [Concomitant]
     Dosage: SINCE BEFORE NEXAVAR ADMINISTRATION
     Route: 048
     Dates: end: 20091109
  9. HERBESSER R [Concomitant]
     Route: 048
  10. MAGLAX [Concomitant]
     Route: 048
  11. LASIX [Concomitant]
     Route: 065
  12. LOCOID [Concomitant]
     Route: 061
     Dates: start: 20091125

REACTIONS (5)
  - ALOPECIA [None]
  - HEPATIC FUNCTION ABNORMAL [None]
  - PALMAR-PLANTAR ERYTHRODYSAESTHESIA SYNDROME [None]
  - RASH [None]
  - STOMATITIS [None]
